FAERS Safety Report 16919349 (Version 2)
Quarter: 2020Q3

REPORT INFORMATION
  Report Type: Report from Study
  Country: GB (occurrence: GB)
  Receive Date: 20191015
  Receipt Date: 20200929
  Transmission Date: 20201102
  Serious: Yes (Other)
  Sender: FDA-Public Use
  Company Number: GB-PFIZER INC-2019445877

PATIENT

DRUGS (9)
  1. TAZOCIN [Concomitant]
     Active Substance: PIPERACILLIN SODIUM\TAZOBACTAM SODIUM
     Indication: PYREXIA
     Dosage: 4.5 G, 1X/DAY (QD)
     Dates: start: 20190913, end: 20190917
  2. METOCLOPRAMIDE. [Concomitant]
     Active Substance: METOCLOPRAMIDE
     Dosage: 9 MG, 3X/DAY (T.I.D)
     Dates: start: 20190911
  3. AMBISONE [Concomitant]
     Active Substance: AMPHOTERICIN B
     Indication: PROPHYLAXIS
     Dosage: 60 MG, UNK (OTHER) THREE TIMES A WEEK
     Dates: start: 20190910
  4. DIFFLAM [Concomitant]
     Active Substance: BENZYDAMINE HYDROCHLORIDE
     Dosage: 5 ML, 1X/DAY (QD)
     Dates: start: 20190911
  5. GEMTUZUMAB OZOGAMICIN [Suspect]
     Active Substance: GEMTUZUMAB OZOGAMICIN
     Indication: ACUTE MYELOID LEUKAEMIA
     Dosage: 4.5 MG, CYCLIC
     Route: 042
     Dates: start: 20190913, end: 20190919
  6. COTRIMOXAZOLE [Concomitant]
     Active Substance: SULFAMETHOXAZOLE\TRIMETHOPRIM
     Indication: PROPHYLAXIS
     Dosage: 480 MG, 2X/WEEK (OTHER)
     Dates: start: 20190907
  7. MITOXANTRONE HCL [Suspect]
     Active Substance: MITOXANTRONE HYDROCHLORIDE
     Indication: ACUTE MYELOID LEUKAEMIA
     Dosage: 20 MG/M2, DAILY, CYCLIC
     Route: 042
     Dates: start: 20190911, end: 20190914
  8. CHLORHEXIDINE [Concomitant]
     Active Substance: CHLORHEXIDINE
     Indication: PROPHYLAXIS
     Dosage: 5 ML, 1X/DAY (QD)
     Dates: start: 20190911
  9. ONDANSETRON [Concomitant]
     Active Substance: ONDANSETRON
     Indication: ILLNESS
     Dosage: 4 MG, 3X/DAY (T.I.D)
     Dates: start: 20190911

REACTIONS (3)
  - Anaemia [Recovered/Resolved]
  - Haematemesis [Recovered/Resolved]
  - Platelet count decreased [Recovered/Resolved]

NARRATIVE: CASE EVENT DATE: 20190929
